FAERS Safety Report 7981468-0 (Version None)
Quarter: 2011Q4

REPORT INFORMATION
  Report Type: 
  Country: None (occurrence: None)
  Receive Date: 20111215
  Receipt Date: 20111207
  Transmission Date: 20120403
  Serious: Yes (Hospitalization, Other)
  Sender: FDA-Public Use
  Company Number: FR-PFIZER INC-2011201341

PATIENT
  Age: 71 Year
  Sex: Male

DRUGS (9)
  1. PANTOPRAZOLE [Suspect]
     Dosage: UNK
     Route: 048
     Dates: start: 20110614, end: 20110727
  2. OXYCODONE HCL [Concomitant]
     Dosage: 5 MG, UNK
     Route: 048
  3. BISOPROLOL FUMARATE [Suspect]
     Dosage: UNK
     Route: 048
     Dates: start: 20110718, end: 20110727
  4. PROSCAR [Suspect]
     Dosage: 5 MG, UNK
     Route: 048
     Dates: start: 20110723, end: 20110727
  5. ASPIRIN [Concomitant]
     Dosage: 160 MG IN SACHET-DOSE, UNK
     Route: 048
  6. OXYCONTIN [Concomitant]
     Dosage: 20 MG, UNK
     Route: 048
  7. ATORVASTATIN CALCIUM [Suspect]
     Dosage: UNK
     Route: 048
     Dates: start: 20110718, end: 20110727
  8. ARIXTRA [Suspect]
     Dosage: UNK
     Route: 058
     Dates: start: 20110718, end: 20110729
  9. PERMIXON [Suspect]
     Dosage: 160 MG, UNK
     Route: 048
     Dates: start: 20110723, end: 20110727

REACTIONS (4)
  - RASH MACULO-PAPULAR [None]
  - ERYTHEMA [None]
  - ALTERED STATE OF CONSCIOUSNESS [None]
  - HYPERCALCAEMIA [None]
